FAERS Safety Report 16673365 (Version 5)
Quarter: 2019Q4

REPORT INFORMATION
  Report Type: Spontaneous
  Country: US (occurrence: US)
  Receive Date: 20190806
  Receipt Date: 20191007
  Transmission Date: 20200122
  Serious: No
  Sender: FDA-Public Use
  Company Number: US-PFIZER INC-2019333252

PATIENT
  Age: 77 Year
  Sex: Female
  Weight: 61 kg

DRUGS (8)
  1. DEPO-ESTRADIOL [Suspect]
     Active Substance: ESTRADIOL CYPIONATE
     Dosage: UNK (1/2 CC - FIRST WEEK DATE STARTED: 4 YRS AGO)
  2. DEPO-ESTRADIOL [Suspect]
     Active Substance: ESTRADIOL CYPIONATE
     Dosage: 1 MG, UNK
     Dates: start: 201605
  3. DEPO-ESTRADIOL [Suspect]
     Active Substance: ESTRADIOL CYPIONATE
     Indication: BLOOD OESTROGEN DECREASED
     Dosage: UNK
     Dates: start: 201505
  4. CLIMARA [Suspect]
     Active Substance: ESTRADIOL
     Indication: HORMONE LEVEL ABNORMAL
     Dosage: UNK, WEEKLY
  5. CLIMARA [Suspect]
     Active Substance: ESTRADIOL
     Dosage: 1/3 OF 0.1 PATCH EVERY DAY
     Dates: start: 2017
  6. DESIPRAMINE [Concomitant]
     Active Substance: DESIPRAMINE
     Indication: ANTIDEPRESSANT THERAPY
     Dosage: 25 MG, UNK
     Dates: start: 201801
  7. CLIMARA [Suspect]
     Active Substance: ESTRADIOL
     Dosage: 0.1 PATCH, 1/3 PT PATCH DAILY/ I CUT IT IN THREE PIECES AND I USE ONE
  8. DESIPRAMINE [Concomitant]
     Active Substance: DESIPRAMINE
     Dosage: 25 MG, 1X/DAY
     Dates: start: 201802

REACTIONS (3)
  - Drug ineffective [Not Recovered/Not Resolved]
  - Malaise [Recovered/Resolved]
  - Body height decreased [Unknown]

NARRATIVE: CASE EVENT DATE: 2015
